FAERS Safety Report 13942033 (Version 3)
Quarter: 2017Q3

REPORT INFORMATION
  Report Type: Spontaneous
  Country: FR (occurrence: FR)
  Receive Date: 20170907
  Receipt Date: 20170918
  Transmission Date: 20171127
  Serious: Yes (Hospitalization)
  Sender: FDA-Public Use
  Company Number: FR-JNJFOC-20170827194

PATIENT
  Age: 23 Year
  Sex: Female

DRUGS (1)
  1. DUROGESIC [Suspect]
     Active Substance: FENTANYL
     Indication: ABDOMINAL PAIN
     Route: 062
     Dates: start: 20170815, end: 20170815

REACTIONS (8)
  - Nausea [Not Recovered/Not Resolved]
  - Vomiting [Not Recovered/Not Resolved]
  - Fatigue [Not Recovered/Not Resolved]
  - Decreased appetite [Unknown]
  - Abdominal pain [Not Recovered/Not Resolved]
  - Constipation [Recovered/Resolved]
  - Vertigo [Recovered/Resolved]
  - Formication [Recovered/Resolved]

NARRATIVE: CASE EVENT DATE: 20170815
